FAERS Safety Report 15704306 (Version 1)
Quarter: 2018Q4

REPORT INFORMATION
  Report Type: Report from Study
  Country: EG (occurrence: EG)
  Receive Date: 20181210
  Receipt Date: 20181210
  Transmission Date: 20190205
  Serious: Yes (Other)
  Sender: FDA-Public Use
  Company Number: PHHY2017EG196026

PATIENT
  Sex: Female

DRUGS (1)
  1. GILENYA [Suspect]
     Active Substance: FINGOLIMOD HYDROCHLORIDE
     Indication: MULTIPLE SCLEROSIS
     Dosage: 0.5 MG, QD
     Route: 065
     Dates: start: 201711

REACTIONS (10)
  - Balance disorder [Recovering/Resolving]
  - Limb discomfort [Not Recovered/Not Resolved]
  - Angina pectoris [Unknown]
  - Multiple sclerosis relapse [Recovered/Resolved with Sequelae]
  - Arthralgia [Unknown]
  - Memory impairment [Recovering/Resolving]
  - Monoplegia [Recovering/Resolving]
  - Pyrexia [Recovering/Resolving]
  - Headache [Recovering/Resolving]
  - Drug ineffective [Not Recovered/Not Resolved]

NARRATIVE: CASE EVENT DATE: 201711
